FAERS Safety Report 15458210 (Version 1)
Quarter: 2018Q3

REPORT INFORMATION
  Report Type: Spontaneous
  Country: US (occurrence: US)
  Receive Date: 20180928
  Receipt Date: 20180928
  Transmission Date: 20181010
  Serious: No
  Sender: FDA-Public Use
  Company Number: None

PATIENT
  Sex: Female

DRUGS (1)
  1. CYTARABINE. [Suspect]
     Active Substance: CYTARABINE

REACTIONS (2)
  - Bone atrophy [None]
  - Joint injury [None]
